FAERS Safety Report 9335130 (Version 1)
Quarter: 2013Q2

REPORT INFORMATION
  Report Type: Report from Study
  Country: US (occurrence: US)
  Receive Date: 20130606
  Receipt Date: 20130606
  Transmission Date: 20140414
  Serious: Yes (Hospitalization)
  Sender: FDA-Public Use
  Company Number: US-BAXTER-2013BAX021036

PATIENT
  Sex: Male

DRUGS (1)
  1. ARALAST NP [Suspect]
     Indication: PRODUCT USED FOR UNKNOWN INDICATION
     Route: 042

REACTIONS (11)
  - Pneumothorax [Unknown]
  - Lung lobectomy [Unknown]
  - Increased upper airway secretion [Unknown]
  - Pain [Unknown]
  - Breast disorder [Unknown]
  - Back pain [Unknown]
  - Musculoskeletal pain [Unknown]
  - Stress [Unknown]
  - Anxiety [Unknown]
  - Anxiety [Unknown]
  - Anger [Unknown]
